FAERS Safety Report 18181466 (Version 1)
Quarter: 2020Q3

REPORT INFORMATION
  Report Type: Spontaneous
  Country: US (occurrence: US)
  Receive Date: 20200821
  Receipt Date: 20200821
  Transmission Date: 20201103
  Serious: Yes (Death, Other)
  Sender: FDA-Public Use
  Company Number: US-TEVA-2020-US-1816193

PATIENT
  Age: 53 Year
  Sex: Male

DRUGS (1)
  1. COPAXONE [Suspect]
     Active Substance: GLATIRAMER ACETATE
     Dosage: FORM STRENGTH: UNKNOWN
     Route: 065

REACTIONS (6)
  - Feeding tube user [Unknown]
  - Multiple sclerosis [Unknown]
  - Aspiration [Unknown]
  - Death [Fatal]
  - Amnesia [Unknown]
  - Spinal fracture [Unknown]

NARRATIVE: CASE EVENT DATE: 2020
